FAERS Safety Report 8183531-0 (Version None)
Quarter: 2012Q1

REPORT INFORMATION
  Report Type: 
  Country: None (occurrence: None)
  Receive Date: 20120305
  Receipt Date: 20120222
  Transmission Date: 20120608
  Serious: Yes (Other)
  Sender: FDA-Public Use
  Company Number: US-ELI_LILLY_AND_COMPANY-US201107000059

PATIENT
  Sex: Male

DRUGS (7)
  1. FORTEO [Suspect]
     Dosage: 20 UG, QD
  2. FORTEO [Suspect]
     Indication: OSTEOPOROSIS
     Dosage: 20 UG, QD
     Route: 065
     Dates: start: 20110615
  3. INSULIN [Concomitant]
  4. ANTIDEPRESSANTS [Concomitant]
  5. ANXIOLYTICS [Concomitant]
  6. FORTEO [Suspect]
     Dosage: 20 UG, QD
  7. FORTEO [Suspect]
     Dosage: 20 UG, QD

REACTIONS (5)
  - ARTHRALGIA [None]
  - IMPAIRED HEALING [None]
  - PAIN IN EXTREMITY [None]
  - BONE MARROW TRANSPLANT [None]
  - MUSCULOSKELETAL PAIN [None]
